FAERS Safety Report 12742729 (Version 1)
Quarter: 2016Q3

REPORT INFORMATION
  Report Type: Spontaneous
  Country: US (occurrence: US)
  Receive Date: 20160914
  Receipt Date: 20160914
  Transmission Date: 20161109
  Serious: No
  Sender: FDA-Public Use
  Company Number: None

PATIENT
  Age: 59 Year

DRUGS (1)
  1. TOPIRAMATE. [Suspect]
     Active Substance: TOPIRAMATE

REACTIONS (3)
  - Memory impairment [None]
  - Change in sustained attention [None]
  - Thinking abnormal [None]

NARRATIVE: CASE EVENT DATE: 20160721
